FAERS Safety Report 26198495 (Version 1)
Quarter: 2025Q4

REPORT INFORMATION
  Report Type: Spontaneous
  Country: US (occurrence: US)
  Receive Date: 20251224
  Receipt Date: 20251224
  Transmission Date: 20260117
  Serious: No
  Sender: DAIICHI
  Company Number: US-DSJP-DS-2025-184226-US

PATIENT
  Sex: Male

DRUGS (1)
  1. ENHERTU [Suspect]
     Active Substance: FAM-TRASTUZUMAB DERUXTECAN-NXKI
     Indication: Oesophageal carcinoma
     Dosage: UNK
     Route: 065
     Dates: start: 2024

REACTIONS (2)
  - Ejection fraction decreased [Recovered/Resolved]
  - Off label use [Not Recovered/Not Resolved]
